FAERS Safety Report 12928313 (Version 3)
Quarter: 2016Q4

REPORT INFORMATION
  Report Type: Spontaneous
  Country: PL (occurrence: PL)
  Receive Date: 20161110
  Receipt Date: 20161125
  Transmission Date: 20170207
  Serious: Yes (Other)
  Sender: FDA-Public Use
  Company Number: PL-009507513-1611POL002403

PATIENT
  Age: 38 Year
  Sex: Female
  Weight: 58 kg

DRUGS (4)
  1. ORGALUTRAN [Suspect]
     Active Substance: GANIRELIX ACETATE
     Indication: OVULATION INDUCTION
     Dosage: 0.25 MG, ONCE A DAY, FROM THE 7TH DAY OF CYCLE
     Route: 058
     Dates: start: 20161024, end: 20161031
  2. MENOPUR [Concomitant]
     Active Substance: FOLLICLE STIMULATING HORMONE BETA POLYPEPTIDE\LUTROPIN ALFA
     Indication: OVULATION INDUCTION
     Dosage: 150 UNITS DAILY, FROM THE 7TH DAY OF CYCLE
     Dates: start: 20161025, end: 20161030
  3. PREGNYL [Suspect]
     Active Substance: CHORIOGONADOTROPIN ALFA
     Dosage: UNK, STRENGTH REPORTED AS 10000 UNITS
     Dates: start: 20161031
  4. LAMETTA [Concomitant]
     Indication: OVULATION INDUCTION
     Dosage: 7.5 MG, DAILY, 3RD- 6TH DAY OF THE CYCLE
     Dates: start: 20161019, end: 20161024

REACTIONS (2)
  - Premature ovulation [Unknown]
  - Drug ineffective [Unknown]

NARRATIVE: CASE EVENT DATE: 2016
